FAERS Safety Report 4658743-0 (Version None)
Quarter: 2005Q2

REPORT INFORMATION
  Report Type: 
  Country: None (occurrence: None)
  Receive Date: 20050509
  Receipt Date: 20050321
  Transmission Date: 20051028
  Serious: Yes (Life-Threatening, Hospitalization)
  Sender: FDA-Public Use
  Company Number: AWBNIASPAND2004-35

PATIENT
  Age: 68 Year
  Sex: Male

DRUGS (16)
  1. NIASPAN [Suspect]
     Indication: HYPERLIPIDAEMIA
     Dosage: 1000 MG QD PO
     Route: 048
     Dates: start: 20050114, end: 20050204
  2. MOCLOBEMIDE [Concomitant]
  3. ESOMEPRAZOLE [Concomitant]
  4. PIROXICAM [Concomitant]
  5. SOTALOL HCL [Concomitant]
  6. HYDROCHLOROTHIAZIDE/IRBESARTAN [Concomitant]
  7. ACETYL SALICYLIC ACID USP BAT [Concomitant]
  8. DOXAZOSIN MESYLATE [Concomitant]
  9. AMLODIPINE BESYLATE [Concomitant]
  10. EZETIMIBE/SIMVASTATIN [Concomitant]
  11. DICLOFENAC SODIUM [Concomitant]
  12. LORAZEPAM [Concomitant]
  13. MIRTAZAPINE [Concomitant]
  14. ZOLPIDEM TARTRATE [Concomitant]
  15. FLUPIRTINE MALEATE [Concomitant]
  16. SIMVASTATIN [Concomitant]

REACTIONS (2)
  - GASTRIC HAEMORRHAGE [None]
  - SUICIDE ATTEMPT [None]
